FAERS Safety Report 4372528-4 (Version None)
Quarter: 2004Q2

REPORT INFORMATION
  Report Type: 
  Country: None (occurrence: None)
  Receive Date: 20040608
  Receipt Date: 20040524
  Transmission Date: 20050107
  Serious: Yes (Other)
  Sender: FDA-Public Use
  Company Number: PHNU2004DE01906

PATIENT
  Age: 64 Year
  Sex: Female

DRUGS (1)
  1. LAMISIL [Suspect]
     Indication: NAIL TINEA
     Route: 048
     Dates: end: 20040501

REACTIONS (4)
  - ABDOMINAL PAIN LOWER [None]
  - ENTEROCOLITIS INFECTIOUS [None]
  - NAUSEA [None]
  - PURULENCE [None]
